FAERS Safety Report 6256733-8 (Version None)
Quarter: 2009Q3

REPORT INFORMATION
  Report Type: 
  Country: None (occurrence: None)
  Receive Date: 20090706
  Receipt Date: 20090624
  Transmission Date: 20100115
  Serious: Yes (Hospitalization)
  Sender: FDA-Public Use
  Company Number: AU-JNJFOC-20090602159

PATIENT
  Sex: Female
  Weight: 58 kg

DRUGS (6)
  1. RISPERIDONE [Suspect]
     Indication: PSYCHOTIC DISORDER
     Route: 048
  2. QUETIAPINE FUMARATE [Concomitant]
     Indication: PSYCHOTIC DISORDER
     Route: 048
  3. LEXAPRO [Concomitant]
     Indication: ANTIDEPRESSANT THERAPY
     Route: 048
  4. VITAMIN [Concomitant]
     Indication: VITAMIN SUPPLEMENTATION
     Route: 048
  5. FOLIC ACID [Concomitant]
     Indication: PROPHYLAXIS
     Route: 048
  6. FERROGRADUMET [Concomitant]
     Indication: VITAMIN SUPPLEMENTATION
     Route: 048

REACTIONS (2)
  - DRUG EXPOSURE DURING PREGNANCY [None]
  - POSTPARTUM DEPRESSION [None]
